FAERS Safety Report 9786359 (Version 2)
Quarter: 2014Q1

REPORT INFORMATION
  Report Type: Spontaneous
  Country: US (occurrence: US)
  Receive Date: 20131227
  Receipt Date: 20140102
  Transmission Date: 20141002
  Serious: Yes (Death)
  Sender: FDA-Public Use
  Company Number: US-BAXTER-2013BAX051906

PATIENT
  Sex: Male

DRUGS (8)
  1. DIANEAL LOW CALCIUM [Suspect]
     Indication: PERITONEAL DIALYSIS
     Route: 033
     Dates: end: 20131216
  2. DIANEAL LOW CALCIUM [Suspect]
     Indication: RENAL FAILURE CHRONIC
  3. DIANEAL LOW CALCIUM [Suspect]
     Indication: PERITONEAL DIALYSIS
     Route: 033
     Dates: end: 20131216
  4. DIANEAL LOW CALCIUM [Suspect]
     Indication: RENAL FAILURE CHRONIC
  5. DIANEAL LOW CALCIUM [Suspect]
     Indication: PERITONEAL DIALYSIS
     Route: 033
     Dates: end: 20131216
  6. DIANEAL LOW CALCIUM [Suspect]
     Indication: RENAL FAILURE CHRONIC
  7. EXTRANEAL [Suspect]
     Indication: PERITONEAL DIALYSIS
     Route: 033
     Dates: end: 20131216
  8. EXTRANEAL [Suspect]
     Indication: RENAL FAILURE CHRONIC

REACTIONS (2)
  - Blood glucose abnormal [Fatal]
  - Diabetic complication [Fatal]
